FAERS Safety Report 4838883-3 (Version None)
Quarter: 2005Q4

REPORT INFORMATION
  Report Type: 
  Country: None (occurrence: None)
  Receive Date: 20051129
  Receipt Date: 20050808
  Transmission Date: 20060501
  Serious: No
  Sender: FDA-Public Use
  Company Number: US-GLAXOSMITHKLINE-A0569259A

PATIENT
  Sex: Female

DRUGS (7)
  1. LOTRONEX [Suspect]
     Indication: IRRITABLE BOWEL SYNDROME
     Dosage: 1.5MG TWICE PER DAY
     Route: 048
  2. CLONAZEPAM [Concomitant]
  3. LEXAPRO [Concomitant]
  4. TRAZODONE [Concomitant]
  5. NASONEX [Concomitant]
  6. CALCIUM SUPPLEMENTS [Concomitant]
  7. FOSAMAX [Concomitant]

REACTIONS (1)
  - BONE DENSITY DECREASED [None]
